FAERS Safety Report 6762932-9 (Version None)
Quarter: 2010Q2

REPORT INFORMATION
  Report Type: 
  Country: None (occurrence: None)
  Receive Date: 20100609
  Receipt Date: 20100529
  Transmission Date: 20101027
  Serious: Yes (Other)
  Sender: FDA-Public Use
  Company Number: BR-PFIZER INC-2010067932

PATIENT
  Age: 56 Year
  Sex: Female
  Weight: 70 kg

DRUGS (5)
  1. CHAMPIX [Suspect]
     Indication: TOBACCO USER
     Dosage: UNK
     Route: 048
     Dates: start: 20100504, end: 20100501
  2. RIVOTRIL [Concomitant]
     Indication: ANXIETY
     Dosage: UNK
  3. VERTIX [Concomitant]
     Indication: LABYRINTHITIS
     Dosage: UNK
  4. ANGIPRESS [Concomitant]
     Indication: HYPERTENSION
     Dosage: UNK
  5. ANGIPRESS [Concomitant]
     Indication: CARDIAC DISORDER

REACTIONS (2)
  - NERVOUSNESS [None]
  - PERSONALITY CHANGE [None]
